FAERS Safety Report 17610121 (Version 1)
Quarter: 2020Q2

REPORT INFORMATION
  Report Type: Spontaneous
  Country: CN (occurrence: CN)
  Receive Date: 20200401
  Receipt Date: 20200401
  Transmission Date: 20200713
  Serious: Yes (Other)
  Sender: FDA-Public Use
  Company Number: CN-SA-2020SA078100

PATIENT
  Age: 75 Year
  Sex: Female

DRUGS (2)
  1. AMLODIPINE BESILATE [Suspect]
     Active Substance: AMLODIPINE BESYLATE
     Indication: PRODUCT USED FOR UNKNOWN INDICATION
     Dosage: UNK
     Route: 048
  2. HARNAL [Suspect]
     Active Substance: TAMSULOSIN HYDROCHLORIDE
     Indication: URETEROLITHIASIS
     Dosage: UNK
     Route: 048
     Dates: start: 20200320, end: 20200321

REACTIONS (2)
  - Product use in unapproved indication [Unknown]
  - Blindness [Unknown]

NARRATIVE: CASE EVENT DATE: 20200320
